FAERS Safety Report 10258990 (Version 1)
Quarter: 2014Q2

REPORT INFORMATION
  Report Type: Spontaneous
  Country: DE (occurrence: DE)
  Receive Date: 20140625
  Receipt Date: 20140625
  Transmission Date: 20141212
  Serious: Yes (Hospitalization)
  Sender: FDA-Public Use
  Company Number: DE-GLAXOSMITHKLINE-D0084448A

PATIENT
  Age: 53 Year
  Sex: Female
  Weight: 70 kg

DRUGS (16)
  1. BENLYSTA [Suspect]
     Indication: SYSTEMIC LUPUS ERYTHEMATOSUS
     Dosage: 720MG PER DAY
     Route: 042
     Dates: start: 201403
  2. METHYLPREDNISOLONE [Concomitant]
     Route: 065
  3. MTX [Concomitant]
     Dosage: 15MG WEEKLY
     Route: 058
  4. CYCLOPHOSPHAMIDE [Concomitant]
     Dosage: 140G CUMULATIVE DOSE
     Route: 065
     Dates: start: 1986
  5. HYDROXYCHLOROQUINE [Concomitant]
     Dosage: 200MG PER DAY
     Route: 065
     Dates: start: 201402
  6. ASS [Concomitant]
     Dosage: 100MG PER DAY
     Route: 065
  7. PRASUGREL [Concomitant]
     Dosage: 10MG PER DAY
     Route: 065
  8. RAMIPRIL [Concomitant]
     Dosage: 5MG PER DAY
     Route: 065
  9. BISOPROLOL [Concomitant]
     Dosage: 5MG PER DAY
     Route: 065
  10. SIMVASTATIN [Concomitant]
     Dosage: 40MG PER DAY
     Route: 065
  11. DOXEPIN [Concomitant]
     Dosage: 10MG PER DAY
     Route: 065
  12. BETAHISTINE [Concomitant]
     Dosage: 3MG TWICE PER DAY
     Route: 065
  13. FOLIC ACID [Concomitant]
     Dosage: 5MG PER DAY
     Route: 065
  14. ZOPICLON [Concomitant]
     Dosage: 7.5MG PER DAY
     Route: 065
  15. PANTOPRAZOL [Concomitant]
     Dosage: 40MG PER DAY
     Route: 065
  16. DEKRISTOL [Concomitant]
     Dosage: 20000IU EVERY TWO WEEKS
     Route: 065

REACTIONS (9)
  - Herpes zoster [Unknown]
  - Herpes zoster [Unknown]
  - General physical health deterioration [Recovered/Resolved]
  - Pyrexia [Recovered/Resolved]
  - Arthralgia [Recovered/Resolved]
  - Chest pain [Unknown]
  - Cough [Unknown]
  - Pleural effusion [Recovering/Resolving]
  - Pleural effusion [Unknown]
